FAERS Safety Report 10647805 (Version 2)
Quarter: 2014Q4

REPORT INFORMATION
  Report Type: Spontaneous
  Country: MM (occurrence: MM)
  Receive Date: 20141212
  Receipt Date: 20141212
  Transmission Date: 20150529
  Serious: Yes (Hospitalization)
  Sender: FDA-Public Use
  Company Number: MM-ROCHE-1503445

PATIENT
  Age: 68 Year
  Sex: Female
  Weight: 50 kg

DRUGS (3)
  1. LEFRA [Concomitant]
     Indication: RHEUMATOID ARTHRITIS
     Route: 048
     Dates: start: 20140208
  2. ACTEMRA [Suspect]
     Active Substance: TOCILIZUMAB
     Route: 041
     Dates: start: 20141007
  3. ACTEMRA [Suspect]
     Active Substance: TOCILIZUMAB
     Indication: RHEUMATOID ARTHRITIS
     Route: 041
     Dates: start: 20140905

REACTIONS (2)
  - Gastrointestinal haemorrhage [Unknown]
  - Disseminated tuberculosis [Not Recovered/Not Resolved]

NARRATIVE: CASE EVENT DATE: 201411
